FAERS Safety Report 20967609 (Version 4)
Quarter: 2023Q1

REPORT INFORMATION
  Report Type: Spontaneous
  Country: CO (occurrence: CO)
  Receive Date: 20220616
  Receipt Date: 20230105
  Transmission Date: 20230418
  Serious: Yes (Hospitalization, Other)
  Sender: FDA-Public Use
  Company Number: CO-PFIZER INC-PV202200001115

PATIENT
  Age: 54 Year
  Sex: Female

DRUGS (2)
  1. PALBOCICLIB [Suspect]
     Active Substance: PALBOCICLIB
     Indication: Breast cancer metastatic
     Dosage: 125 MG
     Route: 048
     Dates: start: 201910
  2. FULVESTRANT [Concomitant]
     Active Substance: FULVESTRANT

REACTIONS (16)
  - Maxillofacial operation [Recovered/Resolved]
  - Intestinal obstruction [Recovered/Resolved]
  - Pleural effusion [Recovered/Resolved]
  - Pain [Unknown]
  - Red blood cell count decreased [Unknown]
  - White blood cell count decreased [Unknown]
  - Urinary tract infection [Unknown]
  - Decreased immune responsiveness [Unknown]
  - Abdominal pain [Recovered/Resolved]
  - Immune system disorder [Recovered/Resolved]
  - Dysstasia [Unknown]
  - Peripheral swelling [Unknown]
  - Haematoma [Unknown]
  - Diarrhoea [Unknown]
  - Laboratory test abnormal [Recovered/Resolved]
  - Tachycardia [Unknown]

NARRATIVE: CASE EVENT DATE: 20220608
